FAERS Safety Report 6634064-1 (Version None)
Quarter: 2010Q1

REPORT INFORMATION
  Report Type: 
  Country: None (occurrence: None)
  Receive Date: 20100315
  Receipt Date: 20100311
  Transmission Date: 20100710
  Serious: Yes (Death, Hospitalization, Other)
  Sender: FDA-Public Use
  Company Number: PHEH2006US03444

PATIENT
  Sex: Male
  Weight: 87.528 kg

DRUGS (49)
  1. ZOMETA [Suspect]
     Indication: METASTASES TO BONE
     Dosage: 4 MG IV Q4W
     Route: 042
     Dates: start: 20020429, end: 20070227
  2. AREDIA [Suspect]
     Indication: METASTASES TO BONE
     Dosage: 90 MG, QMO
     Dates: start: 20010301
  3. AREDIA [Suspect]
     Dosage: 90 MG, QMO
     Route: 042
     Dates: start: 20030414, end: 20051115
  4. LOVENOX [Concomitant]
  5. TAXOTERE [Concomitant]
     Dates: start: 20001215
  6. TAXOL [Concomitant]
  7. DIFLUCAN [Concomitant]
     Dates: start: 20040601
  8. MS CONTIN [Concomitant]
     Indication: PAIN
     Dosage: 200 MG, TID
     Route: 048
  9. MORPHINE SULFATE [Concomitant]
  10. ZOLOFT [Concomitant]
  11. PRILOSEC [Concomitant]
  12. DURAGESIC-100 [Concomitant]
     Indication: PAIN
     Dosage: 75 UG, UNK
     Route: 062
  13. DILAUDID [Concomitant]
     Indication: PAIN
     Dosage: 4 MG, Q2H PRN
  14. FENTANYL [Concomitant]
     Indication: PAIN
     Dosage: 75 UG, UNK
     Route: 062
  15. ACTIQ [Concomitant]
     Indication: PAIN
     Dosage: 200 MG
  16. ACTIQ [Concomitant]
     Dosage: 400 MG
  17. PROCRIT [Concomitant]
  18. ADALAT CC [Concomitant]
  19. TRIAMTERENE AND HYDROCHLOROTHIAZID ^HARRIS^ [Concomitant]
  20. ALBUTEROL [Concomitant]
  21. LORAZEPAM [Concomitant]
  22. TRIAMCINOLONE [Concomitant]
  23. DICLOXACILLIN [Concomitant]
  24. PROMETHAZINE W/ CODEINE [Concomitant]
  25. ADVAIR DISKUS 100/50 [Concomitant]
  26. OXYCODONE HCL [Concomitant]
  27. AMBIEN [Concomitant]
  28. CHLORHEXIDINE GLUCONATE [Concomitant]
  29. SINGULAIR [Concomitant]
  30. SPIRIVA [Concomitant]
  31. PREVACID [Concomitant]
  32. GLIPIZIDE [Concomitant]
  33. VENLAFAXINE HYDROCHLORIDE [Concomitant]
  34. PERPHENAZINE [Concomitant]
  35. BENZTROPINE MESYLATE [Concomitant]
  36. BIAXIN [Concomitant]
  37. PROCRIT                            /00909301/ [Concomitant]
  38. NAVELBINE [Concomitant]
     Dosage: UNK
  39. ARANESP [Concomitant]
     Dosage: UNK
  40. ANZEMET [Concomitant]
     Dosage: UNK
  41. DECADRON [Concomitant]
     Dosage: UNK
  42. GEMZAR [Concomitant]
     Dosage: 1600 MG
  43. ROCEPHIN [Concomitant]
     Dosage: UNK
  44. AZITHROMYCIN [Concomitant]
     Dosage: UNK
  45. LASIX [Concomitant]
     Dosage: UNK
  46. LANTUS [Concomitant]
     Dosage: 20 UNITS / NIGHTLY
  47. HUMULIN 70/30 [Concomitant]
     Dosage: 40 UNITS/ AM, 25 UNITS / PM
  48. HUMULIN R [Concomitant]
     Dosage: UNK
  49. Z-PAK [Concomitant]

REACTIONS (78)
  - ACTINOMYCOSIS [None]
  - ALVEOLAR OSTEITIS [None]
  - ARTHRALGIA [None]
  - ARTIFICIAL CROWN PROCEDURE [None]
  - ASPIRATION PLEURAL CAVITY [None]
  - BACK PAIN [None]
  - BALANCE DISORDER [None]
  - BLOOD CREATININE INCREASED [None]
  - BONE DEBRIDEMENT [None]
  - BONE DISORDER [None]
  - BREATH ODOUR [None]
  - BREATH SOUNDS ABNORMAL [None]
  - BRONCHITIS [None]
  - CARDIAC ARREST [None]
  - CATARACT [None]
  - CENTRAL VENOUS CATHETERISATION [None]
  - CEREBRAL ATROPHY [None]
  - CHRONIC OBSTRUCTIVE PULMONARY DISEASE [None]
  - DECREASED ACTIVITY [None]
  - DEEP VEIN THROMBOSIS [None]
  - DENTAL CARIES [None]
  - DENTAL OPERATION [None]
  - DIABETES MELLITUS [None]
  - DIARRHOEA [None]
  - DISEASE PROGRESSION [None]
  - DYSGEUSIA [None]
  - DYSPNOEA [None]
  - EATING DISORDER [None]
  - EMPHYSEMA [None]
  - ENDODONTIC PROCEDURE [None]
  - EPIDURAL LIPOMATOSIS [None]
  - EXOSTOSIS [None]
  - FUNGAL INFECTION [None]
  - GAIT DISTURBANCE [None]
  - HAEMATOMA [None]
  - HAEMATURIA [None]
  - HERNIA REPAIR [None]
  - HYPERTENSION [None]
  - HYPOXIA [None]
  - IMPAIRED HEALING [None]
  - INCISIONAL DRAINAGE [None]
  - INFECTION [None]
  - INFLAMMATION [None]
  - LUNG OPERATION [None]
  - MALIGNANT PLEURAL EFFUSION [None]
  - METASTATIC NEOPLASM [None]
  - OEDEMA PERIPHERAL [None]
  - ORAL DISORDER [None]
  - OSTEOARTHRITIS [None]
  - OSTEOMYELITIS [None]
  - OSTEONECROSIS [None]
  - OSTEOPETROSIS [None]
  - PAIN IN EXTREMITY [None]
  - PAIN IN JAW [None]
  - PERIODONTAL OPERATION [None]
  - PLEURAL EFFUSION [None]
  - PNEUMONIA [None]
  - POOR PERSONAL HYGIENE [None]
  - PULMONARY EMBOLISM [None]
  - PURULENCE [None]
  - RENAL FAILURE [None]
  - SINUS DISORDER [None]
  - SINUS TACHYCARDIA [None]
  - SPINAL CORD DISORDER [None]
  - SUBCUTANEOUS ABSCESS [None]
  - SWELLING [None]
  - SWELLING FACE [None]
  - THORACOTOMY [None]
  - THROMBOPHLEBITIS [None]
  - THROMBOSIS [None]
  - TOOTH ABSCESS [None]
  - TOOTH DEVELOPMENT DISORDER [None]
  - TOOTH EXTRACTION [None]
  - TOOTH IMPACTED [None]
  - TOOTHACHE [None]
  - VASCULAR OPERATION [None]
  - VENA CAVA FILTER INSERTION [None]
  - WHEELCHAIR USER [None]
